FAERS Safety Report 12618570 (Version 1)
Quarter: 2016Q3

REPORT INFORMATION
  Report Type: Spontaneous
  Country: US (occurrence: None)
  Receive Date: 20160802
  Receipt Date: 20160802
  Transmission Date: 20161109
  Serious: Yes (Hospitalization)
  Sender: FDA-Public Use
  Company Number: None

PATIENT
  Age: 59 Year
  Sex: Male
  Weight: 131 kg

DRUGS (1)
  1. ALISERTIB [Suspect]
     Active Substance: ALISERTIB
     Indication: MALIGNANT GLIOMA
     Dosage: 30MG BID D1-7 ORAL?MAINTENANCE PHASE
     Route: 048
     Dates: start: 20160711

REACTIONS (3)
  - Fall [None]
  - Pulmonary embolism [None]
  - Asthenia [None]

NARRATIVE: CASE EVENT DATE: 20160722
